FAERS Safety Report 23663971 (Version 1)
Quarter: 2024Q1

REPORT INFORMATION
  Report Type: Spontaneous
  Country: CA (occurrence: CA)
  Receive Date: 20240322
  Receipt Date: 20240322
  Transmission Date: 20240409
  Serious: Yes (Other)
  Sender: FDA-Public Use
  Company Number: CA-SANDOZ-SDZ2024CA030687

PATIENT
  Age: 33 Year
  Sex: Male
  Weight: 81 kg

DRUGS (1)
  1. CEFTRIAXONE SODIUM [Suspect]
     Active Substance: CEFTRIAXONE SODIUM
     Indication: Infection
     Dosage: 1 G, Q(1 EVERY 1 DAYS) THERAPY DURATION 3 DAYS
     Route: 042

REACTIONS (7)
  - Skin exfoliation [Unknown]
  - Petechiae [Unknown]
  - Purpura [Unknown]
  - Rash maculo-papular [Unknown]
  - Eosinophilia [Unknown]
  - Rash [Unknown]
  - Drug reaction with eosinophilia and systemic symptoms [Unknown]
